FAERS Safety Report 24042346 (Version 1)
Quarter: 2024Q3

REPORT INFORMATION
  Report Type: Spontaneous
  Country: US (occurrence: None)
  Receive Date: 20240702
  Receipt Date: 20240702
  Transmission Date: 20241017
  Serious: Yes (Other)
  Sender: ASTRAZENECA
  Company Number: 2024A149947

PATIENT
  Sex: Male

DRUGS (4)
  1. ROSUVASTATIN [Suspect]
     Active Substance: ROSUVASTATIN
     Dosage: 20.0MG UNKNOWN
     Route: 048
  2. ROSUVASTATIN [Suspect]
     Active Substance: ROSUVASTATIN
     Dosage: 40.0MG UNKNOWN
     Route: 048
  3. ELIQUIS [Suspect]
     Active Substance: APIXABAN
  4. VYNDAMAX [Suspect]
     Active Substance: TAFAMIDIS

REACTIONS (4)
  - Influenza [Unknown]
  - Anaemia [Unknown]
  - Asthenia [Unknown]
  - Drug interaction [Unknown]
